FAERS Safety Report 17072900 (Version 4)
Quarter: 2020Q1

REPORT INFORMATION
  Report Type: Report from Study
  Country: CA (occurrence: CA)
  Receive Date: 20191125
  Receipt Date: 20200106
  Transmission Date: 20200409
  Serious: Yes (Other)
  Sender: FDA-Public Use
  Company Number: CA-JNJFOC-20191129484

PATIENT
  Age: 52 Year
  Sex: Female
  Weight: 108.96 kg

DRUGS (1)
  1. STELARA [Suspect]
     Active Substance: USTEKINUMAB
     Indication: CROHN^S DISEASE
     Route: 058
     Dates: start: 20180129

REACTIONS (6)
  - Respiratory tract infection [Unknown]
  - Lower respiratory tract infection [Unknown]
  - Constipation [Not Recovered/Not Resolved]
  - Influenza [Unknown]
  - Vomiting [Unknown]
  - Sinusitis [Unknown]

NARRATIVE: CASE EVENT DATE: 201801
